FAERS Safety Report 8178378-5 (Version None)
Quarter: 2012Q1

REPORT INFORMATION
  Report Type: 
  Country: None (occurrence: None)
  Receive Date: 20120301
  Receipt Date: 20120222
  Transmission Date: 20120608
  Serious: Yes (Death, Hospitalization, Other)
  Sender: FDA-Public Use
  Company Number: US-BAXTER-2012BH005205

PATIENT
  Sex: Male

DRUGS (1)
  1. DIANEAL [Suspect]
     Indication: PERITONEAL DIALYSIS
     Route: 033
     Dates: start: 20070101, end: 20120110

REACTIONS (7)
  - BILIARY NEOPLASM [None]
  - MYOCARDIAL INFARCTION [None]
  - INTESTINAL OBSTRUCTION [None]
  - NAUSEA [None]
  - RENAL NEOPLASM [None]
  - ASTHENIA [None]
  - SEPSIS [None]
